FAERS Safety Report 24837286 (Version 4)
Quarter: 2025Q3

REPORT INFORMATION
  Report Type: Spontaneous
  Country: IN (occurrence: IN)
  Receive Date: 20250113
  Receipt Date: 20250730
  Transmission Date: 20251021
  Serious: Yes (Other)
  Sender: PFIZER
  Company Number: IN-PFIZER INC-PV202300093623

PATIENT
  Age: 48 Year
  Sex: Female

DRUGS (11)
  1. PALBOCICLIB [Suspect]
     Active Substance: PALBOCICLIB
     Indication: Breast cancer metastatic
     Route: 048
     Dates: start: 202209
  2. CALCIUM [Concomitant]
     Active Substance: CALCIUM
  3. CCM [CALCIUM CITRATE MALATE;COLECALCIFEROL;FOLIC ACID] [Concomitant]
     Dosage: 1 DF, 1X/DAY
     Dates: start: 2024
  4. DOLO PLUS [Concomitant]
  5. LETROZOLE [Concomitant]
     Active Substance: LETROZOLE
     Dosage: 2.5 MG, 1X/DAY
     Dates: start: 202209
  6. LETROZOLE [Concomitant]
     Active Substance: LETROZOLE
     Dosage: 2.5 MG, 1X/DAY
     Dates: start: 2024
  7. TRIPTORELIN PAMOATE [Concomitant]
     Active Substance: TRIPTORELIN PAMOATE
  8. TRIPTORELIN [Concomitant]
     Active Substance: TRIPTORELIN
     Route: 030
     Dates: start: 20031223
  9. TRIPTORELIN [Concomitant]
     Active Substance: TRIPTORELIN
     Route: 030
     Dates: start: 2024
  10. VIT D [VITAMIN D NOS] [Concomitant]
  11. ARACHITOL [COLECALCIFEROL] [Concomitant]
     Route: 030

REACTIONS (4)
  - Vitamin D decreased [Unknown]
  - Haemoglobin decreased [Recovered/Resolved]
  - White blood cell count decreased [Unknown]
  - Hepatic cyst [Unknown]

NARRATIVE: CASE EVENT DATE: 20230620
